FAERS Safety Report 9092845 (Version 1)
Quarter: 2013Q1

REPORT INFORMATION
  Report Type: Spontaneous
  Country: IT (occurrence: IT)
  Receive Date: 20130201
  Receipt Date: 20130201
  Transmission Date: 20140127
  Serious: Yes (Other)
  Sender: FDA-Public Use
  Company Number: IT-JNJFOC-20130113724

PATIENT
  Age: 64 Year
  Sex: Male

DRUGS (1)
  1. INFLIXIMAB, RECOMBINANT [Suspect]
     Indication: PSORIASIS
     Route: 042
     Dates: start: 20111220, end: 20120607

REACTIONS (1)
  - Edentulous [Recovering/Resolving]
